FAERS Safety Report 20087796 (Version 3)
Quarter: 2021Q4

REPORT INFORMATION
  Report Type: Spontaneous
  Country: JP (occurrence: JP)
  Receive Date: 20211118
  Receipt Date: 20211214
  Transmission Date: 20220303
  Serious: Yes (Life-Threatening)
  Sender: FDA-Public Use
  Company Number: JP-ORGANON-O2111JPN002117

PATIENT
  Age: 36 Year
  Sex: Female

DRUGS (5)
  1. MOMETASONE FUROATE [Suspect]
     Active Substance: MOMETASONE FUROATE
     Dosage: 200 MICROGRAM, QD
     Route: 045
  2. LASCUFLOXACIN HYDROCHLORIDE [Suspect]
     Active Substance: LASCUFLOXACIN HYDROCHLORIDE
     Indication: Pharyngitis
     Dosage: 75 MILLIGRAM, QD
     Route: 048
     Dates: start: 20211020, end: 20211020
  3. CALONAL [Concomitant]
     Active Substance: ACETAMINOPHEN
     Dosage: 300 MILLIGRAM, TID
     Route: 048
     Dates: start: 20211020, end: 20211020
  4. PA [CAFFEINE;PARACETAMOL;PROMETHAZINE METHYLENE DISALICYLATE;SALICYLAM [Concomitant]
     Dosage: 1 TABLET,TID
     Route: 048
     Dates: start: 20211020, end: 20211020
  5. LAFUTIDINE [Concomitant]
     Active Substance: LAFUTIDINE
     Dosage: 10 MILLIGRAM, QD
     Route: 048
     Dates: start: 20211020, end: 20211020

REACTIONS (1)
  - Anaphylactic shock [Recovered/Resolved]

NARRATIVE: CASE EVENT DATE: 20211020
